FAERS Safety Report 4772061-1 (Version None)
Quarter: 2005Q3

REPORT INFORMATION
  Report Type: 
  Country: None (occurrence: None)
  Receive Date: 20050918
  Receipt Date: 20050526
  Transmission Date: 20060218
  Serious: Yes (Hospitalization)
  Sender: FDA-Public Use
  Company Number: US-MERCK-0505USA03245

PATIENT
  Age: 58 Year
  Sex: Male
  Weight: 87 kg

DRUGS (12)
  1. VIOXX [Suspect]
     Indication: ARTHRALGIA
     Route: 048
     Dates: start: 20020101, end: 20040101
  2. VIOXX [Suspect]
     Route: 048
     Dates: start: 20020101, end: 20040101
  3. IBUPROFEN [Concomitant]
     Route: 065
     Dates: start: 20001018, end: 20030224
  4. ASPIRIN [Concomitant]
     Indication: PROPHYLAXIS
     Route: 065
     Dates: start: 19980101
  5. NAPROXEN [Concomitant]
     Route: 065
     Dates: start: 20010326, end: 20030325
  6. PLAVIX [Concomitant]
     Route: 065
     Dates: start: 19990401, end: 20040101
  7. LIPITOR [Concomitant]
     Route: 065
     Dates: start: 19980101
  8. LASIX [Concomitant]
     Route: 065
     Dates: start: 19980101
  9. VALIUM [Concomitant]
     Route: 065
     Dates: start: 20000101
  10. PERCOCET [Concomitant]
     Indication: PAIN
     Route: 065
     Dates: start: 20030101
  11. NITROGLYCERIN [Concomitant]
     Route: 065
  12. ZOLOFT [Concomitant]
     Indication: DEPRESSION
     Route: 065
     Dates: start: 20020101

REACTIONS (14)
  - ANGINA PECTORIS [None]
  - ANHEDONIA [None]
  - ASTHMA [None]
  - CARDIAC FAILURE CONGESTIVE [None]
  - CIRCULATORY COLLAPSE [None]
  - DEPRESSION [None]
  - DRUG HYPERSENSITIVITY [None]
  - DYSPNOEA [None]
  - HYPERSENSITIVITY [None]
  - HYPERTENSION [None]
  - LIFE EXPECTANCY SHORTENED [None]
  - MYOCARDIAL INFARCTION [None]
  - PRESCRIBED OVERDOSE [None]
  - SLEEP APNOEA SYNDROME [None]
